FAERS Safety Report 4276384-4 (Version None)
Quarter: 2004Q1

REPORT INFORMATION
  Report Type: 
  Country: None (occurrence: None)
  Receive Date: 20040121
  Receipt Date: 20040108
  Transmission Date: 20041129
  Serious: Yes (Other)
  Sender: FDA-Public Use
  Company Number: PHBS2004IT00641

PATIENT
  Age: 67 Year
  Sex: Female

DRUGS (2)
  1. IMATINIB [Suspect]
     Indication: BLAST CRISIS IN MYELOGENOUS LEUKAEMIA
     Dosage: 600 MG/D
     Route: 065
     Dates: start: 20001101
  2. IMATINIB [Suspect]
     Dosage: 800 MG/D
     Route: 065

REACTIONS (4)
  - BLISTER [None]
  - LEUKOCYTOSIS [None]
  - PORPHYRIA NON-ACUTE [None]
  - PORPHYRINS URINE INCREASED [None]
